FAERS Safety Report 10169964 (Version 1)
Quarter: 2014Q2

REPORT INFORMATION
  Report Type: Report from Study
  Country: CA (occurrence: CA)
  Receive Date: 20140513
  Receipt Date: 20140513
  Transmission Date: 20141212
  Serious: Yes (Other)
  Sender: FDA-Public Use
  Company Number: CA-BRISTOL-MYERS SQUIBB COMPANY-20717500

PATIENT
  Age: 82 Year
  Sex: Female

DRUGS (8)
  1. ORENCIA [Suspect]
     Indication: RHEUMATOID ARTHRITIS
     Dosage: 1DF:500
     Dates: start: 20101214, end: 201303
  2. SYNTHROID [Concomitant]
  3. CALCIUM [Concomitant]
  4. ROCALTROL [Concomitant]
  5. LIPITOR [Concomitant]
  6. ALBUTEROL [Concomitant]
  7. ASPIRIN [Concomitant]
  8. LOSEC [Concomitant]

REACTIONS (1)
  - Bone disorder [Unknown]
